FAERS Safety Report 26065345 (Version 1)
Quarter: 2025Q4

REPORT INFORMATION
  Report Type: Other
  Country: CA (occurrence: CA)
  Receive Date: 20251119
  Receipt Date: 20251119
  Transmission Date: 20260117
  Serious: Yes (Death, Other)
  Sender: PFIZER
  Company Number: CA-PFIZER INC-202500224702

PATIENT
  Age: 7 Year
  Sex: Female

DRUGS (6)
  1. RITUXIMAB [Suspect]
     Active Substance: RITUXIMAB
     Indication: Interstitial lung disease
  2. RITUXIMAB [Suspect]
     Active Substance: RITUXIMAB
     Indication: Haemophagocytic lymphohistiocytosis
  3. ANAKINRA [Concomitant]
     Active Substance: ANAKINRA
     Indication: Haemophagocytic lymphohistiocytosis
  4. CYCLOPHOSPHAMIDE [Concomitant]
     Active Substance: CYCLOPHOSPHAMIDE
  5. ECULIZUMAB [Concomitant]
     Active Substance: ECULIZUMAB
  6. TACROLIMUS [Concomitant]
     Active Substance: TACROLIMUS

REACTIONS (8)
  - Chest wall haematoma [Fatal]
  - Death [Fatal]
  - Hypofibrinogenaemia [Fatal]
  - Mucosal haemorrhage [Fatal]
  - Multiple organ dysfunction syndrome [Fatal]
  - Post procedural haemorrhage [Fatal]
  - Thrombocytopenia [Fatal]
  - Off label use [Unknown]
